FAERS Safety Report 8218356 (Version 4)
Quarter: 2014Q3

REPORT INFORMATION
  Report Type: Report from Study
  Country: JP (occurrence: JP)
  Receive Date: 20111101
  Receipt Date: 20140907
  Transmission Date: 20150326
  Serious: Yes (Death, Hospitalization, Other)
  Sender: FDA-Public Use
  Company Number: PHHY2011JP95947

PATIENT
  Age: 67 Year
  Sex: Female

DRUGS (9)
  1. RIZE [Concomitant]
     Active Substance: CLOTIAZEPAM
     Dosage: 1 DF, UNK
     Route: 048
  2. RISUMIC [Concomitant]
     Active Substance: AMEZINIUM METILSULFATE
     Dosage: 1 DF, UNK
  3. AMOBAN [Concomitant]
     Active Substance: ZOPICLONE
     Dosage: 1 DF, UNK
     Route: 048
  4. LIPIDIL [Concomitant]
     Active Substance: FENOFIBRATE
     Dosage: 1 DF, UNK
     Route: 048
  5. PURSENNID [Concomitant]
     Active Substance: SENNOSIDES A AND B CALCIUM
     Dosage: 1 DF, UNK
  6. AMN107 [Suspect]
     Active Substance: NILOTINIB
     Indication: CHRONIC MYELOID LEUKAEMIA
     Dosage: 400 MG, DAILY
     Route: 048
     Dates: start: 20111019, end: 20111022
  7. CINACALCET HYDROCHLORIDE [Concomitant]
     Active Substance: CINACALCET HYDROCHLORIDE
     Dosage: 1 DF, UNK
  8. CALCIUM CARBONATE. [Concomitant]
     Active Substance: CALCIUM CARBONATE
     Dosage: 3 G, UNK
     Route: 048
  9. OMEPRAL [Concomitant]
     Active Substance: OMEPRAZOLE
     Dosage: 1 DF, UNK

REACTIONS (7)
  - Haematemesis [Recovering/Resolving]
  - Pleural effusion [Fatal]
  - Septic shock [Fatal]
  - Sepsis [Fatal]
  - Supraventricular extrasystoles [Unknown]
  - Gastrointestinal haemorrhage [Recovering/Resolving]
  - Staphylococcal sepsis [Fatal]

NARRATIVE: CASE EVENT DATE: 20111020
